FAERS Safety Report 16359877 (Version 2)
Quarter: 2020Q1

REPORT INFORMATION
  Report Type: Spontaneous
  Country: US (occurrence: US)
  Receive Date: 20190528
  Receipt Date: 20200102
  Transmission Date: 20200409
  Serious: Yes (Death, Life-Threatening, Hospitalization)
  Sender: FDA-Public Use
  Company Number: US-HORIZON-ACT-0129-2019

PATIENT
  Age: 17 Year
  Sex: Male

DRUGS (9)
  1. ZYRTEC [Concomitant]
     Active Substance: CETIRIZINE HYDROCHLORIDE
     Dosage: 10MG
  2. ACTIMMUNE [Suspect]
     Active Substance: INTERFERON GAMMA-1B
     Indication: NEUTROPHIL FUNCTION DISORDER
     Dosage: 0.5ML UNDER THE SKIN 3 TIMES WEEKLY
     Route: 058
  3. SINGULAIR [Concomitant]
     Active Substance: MONTELUKAST SODIUM
     Dosage: 10MG
  4. SPORANOX [Concomitant]
     Active Substance: ITRACONAZOLE
     Dosage: 100MG
  5. PROAIR HFA [Concomitant]
     Active Substance: ALBUTEROL SULFATE
     Dosage: 90MCG HAF AER AD
  6. BACTROBAN 2% [Concomitant]
  7. MERCAPTOPURINE. [Concomitant]
     Active Substance: MERCAPTOPURINE
     Dosage: 50MG
  8. DELZICOL [Concomitant]
     Active Substance: MESALAMINE
     Dosage: 400MG
  9. CULTURELLE 10B CELL [Concomitant]

REACTIONS (16)
  - Burkholderia infection [Fatal]
  - Pulmonary oedema [Recovered/Resolved]
  - Pneumothorax [Recovered/Resolved]
  - Dialysis [Recovered/Resolved]
  - Coma [Recovered/Resolved]
  - Respiratory disorder [Fatal]
  - Mechanical ventilation [Fatal]
  - Loss of consciousness [Recovered/Resolved]
  - Pneumonia [Fatal]
  - Thrombosis [Recovered/Resolved]
  - Respiratory failure [Fatal]
  - Sepsis [Recovered/Resolved]
  - Lung assist device therapy [Recovered/Resolved]
  - Tracheostomy [Recovered/Resolved]
  - Obstructive airways disorder [Recovered/Resolved]
  - Condition aggravated [Fatal]

NARRATIVE: CASE EVENT DATE: 20190425
